FAERS Safety Report 7151343-2 (Version None)
Quarter: 2010Q4

REPORT INFORMATION
  Report Type: 
  Country: None (occurrence: None)
  Receive Date: 20101210
  Receipt Date: 20101206
  Transmission Date: 20110411
  Serious: Yes (Other)
  Sender: FDA-Public Use
  Company Number: US-RB-015530-10

PATIENT
  Age: 39 Year
  Sex: Female

DRUGS (5)
  1. SUBOXONE [Suspect]
     Indication: DRUG DEPENDENCE
     Route: 060
     Dates: start: 20050101, end: 20100801
  2. SUBOXONE [Suspect]
     Route: 060
     Dates: start: 20100801
  3. DILANTIN [Concomitant]
     Indication: EPILEPSY
     Dosage: DOSING DETAILS UNKNOWN
     Route: 065
  4. GLUCOPHAGE [Concomitant]
     Indication: DIABETES MELLITUS
     Dosage: DOSING DETAILS UNKNOWN
     Route: 065
  5. NEURONTIN [Concomitant]
     Indication: BACK PAIN
     Dosage: DOSING DETAILS UNKNOWN
     Route: 065

REACTIONS (4)
  - CHEST PAIN [None]
  - CONVULSION [None]
  - INSOMNIA [None]
  - SUBSTANCE ABUSE [None]
